FAERS Safety Report 13068510 (Version 1)
Quarter: 2016Q4

REPORT INFORMATION
  Report Type: Spontaneous
  Country: DE (occurrence: DE)
  Receive Date: 20161228
  Receipt Date: 20161228
  Transmission Date: 20170207
  Serious: Yes (Other)
  Sender: FDA-Public Use
  Company Number: GXKR2016DE005844

PATIENT
  Sex: Male

DRUGS (1)
  1. RAMIPRIL 1A PHARMA [Suspect]
     Active Substance: RAMIPRIL
     Indication: PRODUCT USED FOR UNKNOWN INDICATION
     Dosage: UNK UKN, UNK
     Route: 065

REACTIONS (4)
  - Dyspepsia [Unknown]
  - Hiatus hernia [Unknown]
  - Helicobacter gastritis [Recovered/Resolved]
  - Duodenal ulcer [Unknown]
